FAERS Safety Report 11586696 (Version 1)
Quarter: 2015Q4

REPORT INFORMATION
  Report Type: Spontaneous
  Country: US (occurrence: US)
  Receive Date: 20151001
  Receipt Date: 20151001
  Transmission Date: 20160304
  Serious: No
  Sender: FDA-Public Use
  Company Number: US-PFIZER INC-2015128360

PATIENT
  Age: 69 Year
  Sex: Female
  Weight: 52 kg

DRUGS (3)
  1. SUTENT [Suspect]
     Active Substance: SUNITINIB MALATE
     Dosage: 12.5MG EVERY OTHER DAY AND 25MG EVERY OTHER DAY ALTERNATING BETWEEN THE TWO
     Dates: start: 20150411
  2. SUTENT [Suspect]
     Active Substance: SUNITINIB MALATE
     Indication: THYROID CANCER
     Dosage: 12.5 MG, DAILY
     Dates: start: 20150319, end: 20150319
  3. SYNTHROID [Concomitant]
     Active Substance: LEVOTHYROXINE SODIUM
     Dosage: UNK

REACTIONS (5)
  - Hyperkeratosis [Unknown]
  - Blood calcitonin decreased [Unknown]
  - Diarrhoea [Unknown]
  - Product use issue [Unknown]
  - Pain in extremity [Unknown]
